FAERS Safety Report 15983913 (Version 1)
Quarter: 2019Q1

REPORT INFORMATION
  Report Type: Spontaneous
  Country: US (occurrence: US)
  Receive Date: 20190219
  Receipt Date: 20190219
  Transmission Date: 20190418
  Serious: Yes (Hospitalization)
  Sender: FDA-Public Use
  Company Number: None

PATIENT
  Age: 63 Year
  Sex: Female

DRUGS (11)
  1. DEXAMETHASONE 1MG [Concomitant]
  2. BACTRIM DS [Concomitant]
     Active Substance: SULFAMETHOXAZOLE\TRIMETHOPRIM
  3. TRAMADOL 50MG [Concomitant]
     Active Substance: TRAMADOL
  4. TEMOZOLOMIDE. [Suspect]
     Active Substance: TEMOZOLOMIDE
     Route: 048
     Dates: start: 20181024
  5. VITAMIN D3 200 UNIT [Concomitant]
  6. FAMOTIDINE 20MG [Concomitant]
     Active Substance: FAMOTIDINE
  7. FLONASE 50 MCG [Concomitant]
  8. ATENOLOL 50MG [Concomitant]
     Active Substance: ATENOLOL
  9. CHLORTHALIDONE 25MG [Concomitant]
     Active Substance: CHLORTHALIDONE
  10. ONDANSETRON 8MG [Concomitant]
     Active Substance: ONDANSETRON
  11. LEVETIRACETAM 500MG [Concomitant]
     Active Substance: LEVETIRACETAM

REACTIONS (3)
  - Nausea [None]
  - Fall [None]
  - Balance disorder [None]
